FAERS Safety Report 7960300-5 (Version None)
Quarter: 2011Q4

REPORT INFORMATION
  Report Type: 
  Country: None (occurrence: None)
  Receive Date: 20111206
  Receipt Date: 20111202
  Transmission Date: 20120403
  Serious: Yes (Death)
  Sender: FDA-Public Use
  Company Number: PHEH2011US010804

PATIENT
  Age: 66 Year
  Sex: Male

DRUGS (3)
  1. DIOVAN HCT [Suspect]
     Dosage: 1 DF, QD (320/12.5 MG)
  2. MULTI-VITAMIN [Concomitant]
  3. CHOLESTEROL [Concomitant]

REACTIONS (1)
  - DEATH [None]
